FAERS Safety Report 13444221 (Version 4)
Quarter: 2017Q2

REPORT INFORMATION
  Report Type: Spontaneous
  Country: US (occurrence: US)
  Receive Date: 20170414
  Receipt Date: 20170530
  Transmission Date: 20170830
  Serious: Yes (Hospitalization)
  Sender: FDA-Public Use
  Company Number: US-PFIZER INC-2017152380

PATIENT
  Age: 69 Year
  Sex: Female
  Weight: 68 kg

DRUGS (16)
  1. DESMOPRESSIN ACETATE. [Concomitant]
     Active Substance: DESMOPRESSIN ACETATE
     Indication: DIURETIC THERAPY
     Dosage: 0.1 MG, 3X/DAY
     Route: 048
     Dates: start: 1983
  2. CORTEF [Concomitant]
     Active Substance: HYDROCORTISONE
     Dosage: 10 MG, 3X/DAY (2 TABS ORALLY IN THE MORNING AND 1 TABLET ORALLY IN PM)
     Route: 048
  3. FLORINEF ACETATE [Concomitant]
     Active Substance: FLUDROCORTISONE ACETATE
     Indication: HYPONATRAEMIA
     Dosage: 0.1 MG, 1X/DAY
  4. GENOTROPIN [Suspect]
     Active Substance: SOMATROPIN
     Dosage: 0.1 MG, 1X/DAY IN THE EVENING
     Route: 058
     Dates: start: 201501
  5. ONDANSETRON [Concomitant]
     Active Substance: ONDANSETRON
     Indication: GASTRIC DISORDER
     Dosage: 4 MG, AS NEEDED
  6. DEXILANT [Concomitant]
     Active Substance: DEXLANSOPRAZOLE
     Indication: GASTRIC DISORDER
     Dosage: 60 MG, AS NEEDED
  7. CELECOXIB. [Concomitant]
     Active Substance: CELECOXIB
     Dosage: 10 MG, 4X/DAY
  8. GENOTROPIN [Suspect]
     Active Substance: SOMATROPIN
     Indication: GROWTH HORMONE DEFICIENCY
     Dosage: 0.1 MG, DAILY
     Route: 058
     Dates: start: 201412
  9. CELECOXIB. [Concomitant]
     Active Substance: CELECOXIB
     Indication: ARTHRITIS
     Dosage: 200 MG, UNK
  10. SYNTHROID [Concomitant]
     Active Substance: LEVOTHYROXINE SODIUM
     Indication: HYPOTHALAMO-PITUITARY DISORDER
     Dosage: 175 MG, 1X/DAY
     Route: 048
  11. CELECOXIB. [Concomitant]
     Active Substance: CELECOXIB
     Dosage: 10 MG, 3X/DAY
  12. CORTEF [Concomitant]
     Active Substance: HYDROCORTISONE
     Indication: ADRENAL INSUFFICIENCY
     Dosage: 30 MG, 2X/DAY
     Route: 048
     Dates: start: 1970
  13. GENOTROPIN [Suspect]
     Active Substance: SOMATROPIN
     Indication: HYPOPITUITARISM
     Dosage: 0.1 MG, 1X/DAY
     Route: 058
     Dates: start: 201401
  14. DESMOPRESSIN ACETATE. [Concomitant]
     Active Substance: DESMOPRESSIN ACETATE
     Indication: HYPOTHALAMO-PITUITARY DISORDER
  15. SYNTHROID [Concomitant]
     Active Substance: LEVOTHYROXINE SODIUM
     Dosage: 175 UG, DAILY (1 TABLET DAILY)
     Route: 048
  16. GENOTROPIN [Suspect]
     Active Substance: SOMATROPIN
     Dosage: 0.1 MG, DAILY
     Route: 058
     Dates: start: 20141205

REACTIONS (12)
  - Headache [Recovered/Resolved]
  - Device issue [Unknown]
  - Abasia [Recovered/Resolved]
  - Fatigue [Not Recovered/Not Resolved]
  - Lack of spontaneous speech [Recovered/Resolved]
  - Drug dose omission [Unknown]
  - Pituitary-dependent Cushing^s syndrome [Unknown]
  - Respiration abnormal [Recovered/Resolved]
  - Paraesthesia [Recovered/Resolved]
  - Poor quality drug administered [Unknown]
  - Tremor [Recovered/Resolved]
  - Limb discomfort [Recovered/Resolved]

NARRATIVE: CASE EVENT DATE: 20170401
